FAERS Safety Report 7893244-8 (Version None)
Quarter: 2011Q4

REPORT INFORMATION
  Report Type: 
  Country: None (occurrence: None)
  Receive Date: 20111104
  Receipt Date: 20111031
  Transmission Date: 20120403
  Serious: Yes (Hospitalization)
  Sender: FDA-Public Use
  Company Number: PHHY2011US57584

PATIENT
  Sex: Female
  Weight: 61.23 kg

DRUGS (9)
  1. OMEPRAZOLE [Concomitant]
  2. FLEXERIL [Concomitant]
  3. ACTONEL [Concomitant]
  4. ZOCOR [Concomitant]
  5. FOLIC ACID [Concomitant]
  6. NORVASC [Concomitant]
  7. HYDROCHLOROTHIAZIDE [Concomitant]
  8. EXJADE [Suspect]
     Indication: SICKLE CELL ANAEMIA
     Dosage: 2000 MG, DAILY
     Route: 048
     Dates: start: 20110426
  9. EXJADE [Suspect]
     Dosage: 1000 MG, DAILY
     Route: 048

REACTIONS (2)
  - RENAL IMPAIRMENT [None]
  - CHEST PAIN [None]
